FAERS Safety Report 6029416-7 (Version None)
Quarter: 2009Q1

REPORT INFORMATION
  Report Type: 
  Country: None (occurrence: None)
  Receive Date: 20090105
  Receipt Date: 20081222
  Transmission Date: 20090719
  Serious: Yes (Other)
  Sender: FDA-Public Use
  Company Number: 2008-188839-NL

PATIENT
  Age: 64 Year
  Sex: Female

DRUGS (8)
  1. DANAPAROID [Suspect]
     Dosage: 2250 ANTI_XA ONCE INTRAVENOUS BOLUS
     Route: 040
  2. DANAPAROID [Suspect]
     Dosage: 400 ANTI_XA, 400 U/H
  3. DANAPAROID [Suspect]
     Dosage: 300 ANTI_XA, 300 U/H
  4. DANAPAROID [Suspect]
     Dosage: 200 ANTI_XA, 200 U/H
  5. DANAPAROID [Suspect]
     Dosage: 315 ANTI_XA
  6. FONDAPARINUX [Suspect]
     Indication: PROPHYLAXIS
     Dosage: 2.5 MG DAILY SUBCUTANEOUS
     Route: 058
  7. ARGATROBAN [Suspect]
     Indication: PROPHYLAXIS
     Dosage: 200 UG/KG/MIN DAILY INTRAVENOUS (NOS)
     Route: 042
  8. DALTEPARIN SODIUM [Concomitant]

REACTIONS (16)
  - ACTIVATED PARTIAL THROMBOPLASTIN TIME PROLONGED [None]
  - ADRENAL DISORDER [None]
  - ADRENAL HAEMORRHAGE [None]
  - ADRENAL INSUFFICIENCY [None]
  - AMNESIA [None]
  - BLOOD LACTATE DEHYDROGENASE INCREASED [None]
  - CALCINOSIS [None]
  - CEREBRAL ISCHAEMIA [None]
  - DEEP VEIN THROMBOSIS [None]
  - DELIRIUM [None]
  - DISORIENTATION [None]
  - HEPARIN-INDUCED THROMBOCYTOPENIA [None]
  - INTERNATIONAL NORMALISED RATIO DECREASED [None]
  - RENAL FAILURE [None]
  - SEPSIS [None]
  - THROMBOTIC THROMBOCYTOPENIC PURPURA [None]
